FAERS Safety Report 5875008-X (Version None)
Quarter: 2008Q3

REPORT INFORMATION
  Report Type: 
  Country: None (occurrence: None)
  Receive Date: 20080908
  Receipt Date: 20080908
  Transmission Date: 20090109
  Serious: No
  Sender: FDA-Public Use
  Company Number: None

PATIENT
  Age: 44 Year
  Sex: Female
  Weight: 74.8435 kg

DRUGS (2)
  1. ALDARA [Suspect]
     Indication: BASAL CELL CARCINOMA
     Dosage: VERY SMALL AMOUNT 3 TIMES A WEEK TOP
     Route: 061
     Dates: start: 20080813, end: 20080831
  2. ALDARA [Suspect]
     Indication: PRECANCEROUS SKIN LESION
     Dosage: VERY SMALL AMOUNT 3 TIMES A WEEK TOP
     Route: 061
     Dates: start: 20080813, end: 20080831

REACTIONS (2)
  - APPLICATION SITE SCAB [None]
  - INFLUENZA LIKE ILLNESS [None]
